FAERS Safety Report 12381978 (Version 2)
Quarter: 2016Q3

REPORT INFORMATION
  Report Type: Report from Study
  Country: US (occurrence: US)
  Receive Date: 20160518
  Receipt Date: 20160809
  Transmission Date: 20161109
  Serious: Yes (Hospitalization, Other)
  Sender: FDA-Public Use
  Company Number: US-BAYER-2015-466920

PATIENT
  Age: 72 Year
  Sex: Female

DRUGS (21)
  1. TREPROSTINIL [Concomitant]
     Active Substance: TREPROSTINIL
  2. METOLAZONE. [Concomitant]
     Active Substance: METOLAZONE
  3. ADEMPAS [Suspect]
     Active Substance: RIOCIGUAT
     Indication: PULMONARY ARTERIAL HYPERTENSION
     Dosage: 1 MG, TID
     Route: 048
     Dates: start: 20151125
  4. ADEMPAS [Suspect]
     Active Substance: RIOCIGUAT
     Indication: PULMONARY ARTERIAL HYPERTENSION
     Dosage: 2 MG, TID
     Route: 048
     Dates: start: 20150924
  5. VICODIN [Concomitant]
     Active Substance: ACETAMINOPHEN\HYDROCODONE BITARTRATE
  6. METOPROLOL. [Concomitant]
     Active Substance: METOPROLOL
  7. ADEMPAS [Suspect]
     Active Substance: RIOCIGUAT
     Indication: PULMONARY ARTERIAL HYPERTENSION
     Dosage: 2.5 MG, TID
     Route: 048
     Dates: start: 20151026
  8. HYDRALAZINE [Concomitant]
     Active Substance: HYDRALAZINE HYDROCHLORIDE
  9. POTASSIUM [Concomitant]
     Active Substance: POTASSIUM
  10. SYMBICORT [Concomitant]
     Active Substance: BUDESONIDE\FORMOTEROL FUMARATE DIHYDRATE
  11. FUROSEMIDE. [Concomitant]
     Active Substance: FUROSEMIDE
  12. ADEMPAS [Suspect]
     Active Substance: RIOCIGUAT
     Indication: PULMONARY ARTERIAL HYPERTENSION
     Dosage: 1 MG, TID
     Route: 048
     Dates: start: 20151027
  13. HYDRALAZINE [Concomitant]
     Active Substance: HYDRALAZINE HYDROCHLORIDE
  14. ESTRADIOL. [Concomitant]
     Active Substance: ESTRADIOL
  15. ADEMPAS [Suspect]
     Active Substance: RIOCIGUAT
     Indication: PULMONARY ARTERIAL HYPERTENSION
     Dosage: 2 MG, TID
     Route: 048
     Dates: start: 20160323
  16. IPRATROPIUM [Concomitant]
     Active Substance: IPRATROPIUM
  17. AMLODIPINE [Concomitant]
     Active Substance: AMLODIPINE BESYLATE
  18. SPIRIVA [Concomitant]
     Active Substance: TIOTROPIUM BROMIDE MONOHYDRATE
  19. ASPIRIN. [Concomitant]
     Active Substance: ASPIRIN
  20. ADEMPAS [Suspect]
     Active Substance: RIOCIGUAT
     Indication: PULMONARY ARTERIAL HYPERTENSION
     Dosage: 1 MG, TID
     Route: 048
     Dates: start: 20151026
  21. ALBUTEROL. [Concomitant]
     Active Substance: ALBUTEROL

REACTIONS (15)
  - Oedema peripheral [None]
  - Malaise [Recovering/Resolving]
  - Blood potassium decreased [Not Recovered/Not Resolved]
  - Asthenia [Recovering/Resolving]
  - Pneumonia [None]
  - Oedema [None]
  - Pericardial effusion [None]
  - Headache [None]
  - Cardiac failure congestive [None]
  - Peripheral swelling [Not Recovered/Not Resolved]
  - Hospitalisation [None]
  - Cardiac failure congestive [None]
  - Cardiac failure congestive [None]
  - Nausea [None]
  - Weight increased [None]

NARRATIVE: CASE EVENT DATE: 20151108
